FAERS Safety Report 8592255-7 (Version None)
Quarter: 2012Q3

REPORT INFORMATION
  Report Type: 
  Country: None (occurrence: None)
  Receive Date: 20120814
  Receipt Date: 20120803
  Transmission Date: 20120928
  Serious: Yes (Hospitalization)
  Sender: FDA-Public Use
  Company Number: DE-AMGEN-DEUSP2012027592

PATIENT
  Age: 62 Year
  Sex: Female
  Weight: 69.3 kg

DRUGS (8)
  1. PREDNISOLONE [Suspect]
     Dosage: 5 MG, 1X/DAY
     Dates: start: 19830101
  2. RAMIPRIL [Concomitant]
     Dosage: UNK
  3. ARAVA [Suspect]
     Dosage: 10 MG, 1X/DAY
     Route: 048
     Dates: start: 20100501, end: 20120101
  4. BISOPROLOL [Concomitant]
     Dosage: UNK
  5. ARAVA [Suspect]
     Dosage: 5 MG, QD
     Dates: start: 19830101
  6. ARAVA [Suspect]
     Indication: RHEUMATOID ARTHRITIS
     Dosage: UNK
     Dates: start: 19990101, end: 20091001
  7. ENBREL [Suspect]
     Indication: RHEUMATOID ARTHRITIS
     Dosage: 50 MG, WEEKLY
     Route: 058
     Dates: start: 20091001, end: 20120101
  8. OMEPRAZOLE [Concomitant]
     Dosage: UNK

REACTIONS (3)
  - IMPAIRED HEALING [None]
  - BURSITIS [None]
  - WOUND INFECTION [None]
